FAERS Safety Report 7534446-X (Version None)
Quarter: 2011Q2

REPORT INFORMATION
  Report Type: 
  Country: None (occurrence: None)
  Receive Date: 20110608
  Receipt Date: 20110606
  Transmission Date: 20111010
  Serious: Yes (Hospitalization, Disabling)
  Sender: FDA-Public Use
  Company Number: FR-ABBOTT-11P-056-0730612-00

PATIENT
  Age: 89 Year
  Sex: Female

DRUGS (8)
  1. ESCITALOPRAM [Suspect]
     Indication: PRODUCT USED FOR UNKNOWN INDICATION
     Route: 048
     Dates: start: 20110207, end: 20110309
  2. ESCITALOPRAM [Suspect]
     Route: 048
     Dates: start: 20110310, end: 20110403
  3. PROPRANOLOL [Concomitant]
     Indication: PRODUCT USED FOR UNKNOWN INDICATION
  4. DEPAKOTE [Suspect]
     Indication: HYPOMANIA
     Dosage: UNKNOWN
     Route: 065
     Dates: start: 20110405, end: 20110415
  5. LITHIUM CARBONATE [Suspect]
     Indication: HYPOMANIA
     Dosage: UNKNOWN
     Route: 048
     Dates: start: 20110402, end: 20110404
  6. PREVISCAN [Concomitant]
     Indication: PRODUCT USED FOR UNKNOWN INDICATION
  7. LASIX [Concomitant]
     Indication: PRODUCT USED FOR UNKNOWN INDICATION
  8. RAMIPRIL [Concomitant]
     Indication: PRODUCT USED FOR UNKNOWN INDICATION

REACTIONS (1)
  - DYSKINESIA [None]
